FAERS Safety Report 10165946 (Version 1)
Quarter: 2014Q2

REPORT INFORMATION
  Report Type: Spontaneous
  Country: US (occurrence: US)
  Receive Date: 20140510
  Receipt Date: 20140510
  Transmission Date: 20141212
  Serious: Yes (Hospitalization)
  Sender: FDA-Public Use
  Company Number: US-MYLANLABS-2014S1010121

PATIENT
  Age: 41 Year
  Sex: Male

DRUGS (4)
  1. METHOTREXATE [Suspect]
     Indication: RASH
     Route: 065
  2. METHOTREXATE [Suspect]
     Indication: PSORIATIC ARTHROPATHY
     Route: 065
  3. METHOTREXATE [Suspect]
     Indication: RASH
     Route: 048
  4. METHOTREXATE [Suspect]
     Indication: PSORIATIC ARTHROPATHY
     Route: 048

REACTIONS (3)
  - Pericarditis [Recovering/Resolving]
  - Pleurisy [Recovering/Resolving]
  - Pleural effusion [Recovering/Resolving]
